FAERS Safety Report 4341183-1 (Version None)
Quarter: 2004Q2

REPORT INFORMATION
  Report Type: 
  Country: None (occurrence: None)
  Receive Date: 20040413
  Receipt Date: 20040330
  Transmission Date: 20050107
  Serious: Yes (Other)
  Sender: FDA-Public Use
  Company Number: 2004-UK-00312UK

PATIENT
  Age: 31 Year
  Sex: Female
  Weight: 45.5 kg

DRUGS (3)
  1. VIRAMUNE [Suspect]
     Indication: HIV INFECTION
     Dosage: 200 MG TWICE DAILY (200 MG,TWICE DAILY), PO
     Route: 048
     Dates: start: 20031124, end: 20031225
  2. VIRAMUNE [Suspect]
     Indication: PROPHYLAXIS
     Dosage: 200 MG TWICE DAILY (200 MG,TWICE DAILY), PO
     Route: 048
     Dates: start: 20031124, end: 20031225
  3. COMBIVIR [Concomitant]

REACTIONS (3)
  - COMPLICATIONS OF MATERNAL EXPOSURE TO THERAPEUTIC DRUGS [None]
  - MATERNAL DRUGS AFFECTING FOETUS [None]
  - STILLBIRTH [None]
